FAERS Safety Report 17930672 (Version 2)
Quarter: 2020Q3

REPORT INFORMATION
  Report Type: Spontaneous
  Country: US (occurrence: US)
  Receive Date: 20200623
  Receipt Date: 20200731
  Transmission Date: 20201103
  Serious: Yes (Hospitalization, Other)
  Sender: FDA-Public Use
  Company Number: US-HARMONY BIOSCIENCES-2020HMY00833

PATIENT
  Age: 45 Year
  Sex: Male
  Weight: 93.88 kg

DRUGS (2)
  1. WAKIX [Suspect]
     Active Substance: PITOLISANT HYDROCHLORIDE
     Indication: NARCOLEPSY
     Dosage: TITRATED UP
     Dates: start: 2020, end: 2020
  2. WAKIX [Suspect]
     Active Substance: PITOLISANT HYDROCHLORIDE
     Dosage: 35.6 MG, 1X/DAY IN THE MORNING
     Dates: start: 2020, end: 2020

REACTIONS (5)
  - Aggression [Recovered/Resolved]
  - Screaming [Recovered/Resolved]
  - Depressed mood [Recovered/Resolved]
  - Schizophrenia [Not Recovered/Not Resolved]
  - Mania [Recovered/Resolved]

NARRATIVE: CASE EVENT DATE: 2020
